FAERS Safety Report 9398941 (Version 2)
Quarter: 2013Q3

REPORT INFORMATION
  Report Type: Spontaneous
  Country: JP (occurrence: JP)
  Receive Date: 20130712
  Receipt Date: 20130718
  Transmission Date: 20140515
  Serious: No
  Sender: FDA-Public Use
  Company Number: JP-B.I. PHARMACEUTICALS,INC./RIDGEFIELD-2013-BI-20292NB

PATIENT
  Age: 75 Year
  Sex: Male

DRUGS (4)
  1. TRAZENTA [Suspect]
     Indication: DIABETES MELLITUS
     Dosage: 5 MG
     Route: 048
     Dates: start: 20130621, end: 20130707
  2. MICARDIS [Concomitant]
     Route: 048
  3. ALLOPURINOL [Concomitant]
     Route: 048
  4. SHAKUYAKUKANZOTO [Concomitant]
     Route: 048

REACTIONS (1)
  - Rash [Unknown]
